FAERS Safety Report 6234104-8 (Version None)
Quarter: 2009Q2

REPORT INFORMATION
  Report Type: 
  Country: None (occurrence: None)
  Receive Date: 20090616
  Receipt Date: 20090616
  Transmission Date: 20091009
  Serious: Yes (Hospitalization)
  Sender: FDA-Public Use
  Company Number: None

PATIENT
  Age: 76 Year
  Sex: Female
  Weight: 78.2 kg

DRUGS (10)
  1. QUINAPRIL [Suspect]
     Indication: HYPERTENSION
     Dosage: 10 MG DAILY PO
     Route: 048
     Dates: start: 20060325, end: 20090409
  2. NORVASC [Concomitant]
  3. LASIX [Concomitant]
  4. BETHANECOL [Concomitant]
  5. ZOCOR [Concomitant]
  6. DARVOCET-N 100 [Concomitant]
  7. HUMALOG [Concomitant]
  8. FOLGARD [Concomitant]
  9. VICODIN [Concomitant]
  10. ALLOPURINOL [Concomitant]

REACTIONS (3)
  - ANGIOEDEMA [None]
  - PNEUMONIA [None]
  - RESPIRATORY FAILURE [None]
